FAERS Safety Report 19374900 (Version 3)
Quarter: 2021Q3

REPORT INFORMATION
  Report Type: Spontaneous
  Country: US (occurrence: US)
  Receive Date: 20210604
  Receipt Date: 20210817
  Transmission Date: 20211014
  Serious: No
  Sender: FDA-Public Use
  Company Number: US-AMGEN-USASP2021082378

PATIENT
  Age: 60 Year
  Sex: Female
  Weight: 114 kg

DRUGS (2)
  1. NEULASTA [Suspect]
     Active Substance: PEGFILGRASTIM
     Dosage: 6 MICROGRAM
     Route: 065
  2. NEULASTA [Suspect]
     Active Substance: PEGFILGRASTIM
     Indication: NEUTROPENIA
     Dosage: 6 MICROGRAM
     Route: 065
     Dates: start: 20210412

REACTIONS (2)
  - Cognitive disorder [Unknown]
  - Product communication issue [Unknown]

NARRATIVE: CASE EVENT DATE: 2021
